FAERS Safety Report 24217023 (Version 1)
Quarter: 2024Q3

REPORT INFORMATION
  Report Type: Spontaneous
  Country: US (occurrence: US)
  Receive Date: 20240816
  Receipt Date: 20240816
  Transmission Date: 20241017
  Serious: No
  Sender: AMGEN
  Company Number: US-AMGEN-USASP2024161639

PATIENT
  Age: 47 Year
  Sex: Male

DRUGS (5)
  1. OTEZLA [Suspect]
     Active Substance: APREMILAST
     Indication: Product used for unknown indication
     Dosage: 30 MILLIGRAM, BID
     Route: 065
     Dates: start: 20231106, end: 20240320
  2. TRULICITY [Concomitant]
     Active Substance: DULAGLUTIDE
  3. Arb [Concomitant]
  4. INSULIN NOS [Concomitant]
     Active Substance: INSULIN NOS
  5. METFORMIN [Concomitant]
     Active Substance: METFORMIN HYDROCHLORIDE

REACTIONS (1)
  - Hepatic enzyme increased [Unknown]
